FAERS Safety Report 17817700 (Version 1)
Quarter: 2020Q2

REPORT INFORMATION
  Report Type: Spontaneous
  Country: US (occurrence: US)
  Receive Date: 20200522
  Receipt Date: 20200522
  Transmission Date: 20200714
  Serious: Yes (Death, Other)
  Sender: FDA-Public Use
  Company Number: US-BRACCO-2020US02030

PATIENT
  Age: 51 Year
  Sex: Male

DRUGS (1)
  1. LUMASON [Suspect]
     Active Substance: SULFUR HEXAFLUORIDE
     Indication: ECHOCARDIOGRAM
     Dosage: 2 ML, SINGLE
     Dates: start: 20200518, end: 20200518

REACTIONS (7)
  - Electrocardiogram ST segment elevation [Unknown]
  - Hyperhidrosis [Unknown]
  - Feeling hot [Unknown]
  - Ventricular fibrillation [Fatal]
  - Loss of consciousness [Unknown]
  - Tachycardia [Unknown]
  - Dizziness [Unknown]

NARRATIVE: CASE EVENT DATE: 20200518
